FAERS Safety Report 7131801-7 (Version None)
Quarter: 2010Q4

REPORT INFORMATION
  Report Type: 
  Country: None (occurrence: None)
  Receive Date: 20101202
  Receipt Date: 20101015
  Transmission Date: 20110411
  Serious: Yes (Hospitalization)
  Sender: FDA-Public Use
  Company Number: US-BIOGENIDEC-2010BI029388

PATIENT
  Age: 42 Year
  Sex: Male

DRUGS (3)
  1. TYSABRI [Suspect]
     Indication: MULTIPLE SCLEROSIS
     Route: 042
     Dates: start: 20061026, end: 20090728
  2. TYSABRI [Suspect]
     Route: 042
     Dates: start: 20100121
  3. AMPYRA [Concomitant]
     Indication: GAIT DISTURBANCE

REACTIONS (1)
  - ESCHERICHIA URINARY TRACT INFECTION [None]
